FAERS Safety Report 18848341 (Version 2)
Quarter: 2021Q1

REPORT INFORMATION
  Report Type: Spontaneous
  Country: PK (occurrence: PK)
  Receive Date: 20210204
  Receipt Date: 20210218
  Transmission Date: 20210419
  Serious: Yes (Death, Other)
  Sender: FDA-Public Use
  Company Number: PK-NOVOPROD-784461

PATIENT
  Age: 43 Year
  Sex: Male
  Weight: 50 kg

DRUGS (1)
  1. NOVOMIX 30 FLEXPEN [Suspect]
     Active Substance: INSULIN ASPART
     Indication: DIABETES MELLITUS
     Dosage: UNK
     Route: 065

REACTIONS (2)
  - Skin ulcer [Fatal]
  - Leg amputation [Unknown]

NARRATIVE: CASE EVENT DATE: 20200802
